FAERS Safety Report 8062949-0 (Version None)
Quarter: 2012Q1

REPORT INFORMATION
  Report Type: 
  Country: None (occurrence: None)
  Receive Date: 20120123
  Receipt Date: 20120123
  Transmission Date: 20120608
  Serious: Yes (Other)
  Sender: FDA-Public Use
  Company Number: None

PATIENT
  Age: 64 Year
  Sex: Female
  Weight: 56.699 kg

DRUGS (1)
  1. RECLAST [Suspect]

REACTIONS (8)
  - MOBILITY DECREASED [None]
  - FALL [None]
  - RENAL FAILURE ACUTE [None]
  - ARTHRALGIA [None]
  - PELVIC FRACTURE [None]
  - BLOOD SODIUM DECREASED [None]
  - CERVICAL VERTEBRAL FRACTURE [None]
  - RENAL FAILURE CHRONIC [None]
